FAERS Safety Report 9866778 (Version 1)
Quarter: 2014Q1

REPORT INFORMATION
  Report Type: Report from Study
  Country: FR (occurrence: FR)
  Receive Date: 20140204
  Receipt Date: 20140204
  Transmission Date: 20141002
  Serious: Yes (Other)
  Sender: FDA-Public Use
  Company Number: FR-ROCHE-1343870

PATIENT
  Age: 69 Year
  Sex: 0

DRUGS (1)
  1. VEMURAFENIB [Suspect]
     Indication: METASTATIC MALIGNANT MELANOMA
     Route: 048

REACTIONS (1)
  - Renal failure acute [Recovered/Resolved]
